FAERS Safety Report 8732717 (Version 2)
Quarter: 2012Q4

REPORT INFORMATION
  Report Type: Report from Study
  Country: DE (occurrence: DE)
  Receive Date: 20120820
  Receipt Date: 20120904
  Transmission Date: 20130627
  Serious: Yes (Hospitalization)
  Sender: FDA-Public Use
  Company Number: DE-ROCHE-1103539

PATIENT
  Age: 52 Year
  Sex: Female
  Weight: 70 kg

DRUGS (3)
  1. PEGASYS [Suspect]
     Indication: HEPATITIS C
     Dosage: Last dose prior to SAE on 20/Jul/2012
     Route: 058
     Dates: start: 20120622
  2. COPEGUS [Suspect]
     Indication: HEPATITIS C
     Dosage: Last dose prior to SAE on 26/Jul/2012
     Route: 048
     Dates: start: 20120622
  3. BOCEPREVIR [Suspect]
     Indication: HEPATITIS C
     Dosage: Last dose prior to SAE on 26/Jul/2012
     Route: 048
     Dates: start: 20120719

REACTIONS (1)
  - Somnolence [Not Recovered/Not Resolved]
